FAERS Safety Report 17369340 (Version 1)
Quarter: 2020Q1

REPORT INFORMATION
  Report Type: Spontaneous
  Country: US (occurrence: US)
  Receive Date: 20200203
  Receipt Date: 20200203
  Transmission Date: 20200409
  Serious: No
  Sender: FDA-Public Use
  Company Number: None

PATIENT
  Age: 67 Year
  Sex: Female
  Weight: 72.57 kg

DRUGS (1)
  1. LEVULAN KERASTICK [Suspect]
     Active Substance: AMINOLEVULINIC ACID HYDROCHLORIDE
     Indication: ACTINIC KERATOSIS
     Dates: start: 20200121, end: 20200121

REACTIONS (9)
  - Blister [None]
  - Disease recurrence [None]
  - Swelling face [None]
  - Adverse drug reaction [None]
  - Application site burn [None]
  - Haemorrhage [None]
  - Pain [None]
  - Product use complaint [None]
  - Herpes zoster [None]

NARRATIVE: CASE EVENT DATE: 20200121
